FAERS Safety Report 12657037 (Version 1)
Quarter: 2016Q3

REPORT INFORMATION
  Report Type: Spontaneous
  Country: US (occurrence: US)
  Receive Date: 20160816
  Receipt Date: 20160816
  Transmission Date: 20161109
  Serious: Yes (Hospitalization)
  Sender: FDA-Public Use
  Company Number: US-DSJP-DSU-2016-116330

PATIENT

DRUGS (2)
  1. BENICAR HCT [Suspect]
     Active Substance: HYDROCHLOROTHIAZIDE\OLMESARTAN MEDOXOMIL
     Indication: HYPERTENSION
     Dosage: 20/12.5, UNK
  2. BENICAR [Suspect]
     Active Substance: OLMESARTAN MEDOXOMIL
     Indication: HYPERTENSION
     Dosage: 40 MG, UNK
     Dates: start: 20070325, end: 20100816

REACTIONS (10)
  - Hepatobiliary scan abnormal [Recovered/Resolved]
  - Cholecystitis chronic [Recovered/Resolved]
  - Upper respiratory tract infection [Unknown]
  - Gastroenteritis [Unknown]
  - Hepatic enzyme increased [Recovered/Resolved]
  - Diverticulitis [Not Recovered/Not Resolved]
  - Immune system disorder [Unknown]
  - Malabsorption [Recovering/Resolving]
  - Constipation [Unknown]
  - Anaemia [Recovered/Resolved]

NARRATIVE: CASE EVENT DATE: 2009
